FAERS Safety Report 4845272-4 (Version None)
Quarter: 2005Q4

REPORT INFORMATION
  Report Type: 
  Country: None (occurrence: None)
  Receive Date: 20051123
  Receipt Date: 20051110
  Transmission Date: 20060501
  Serious: Yes (Other)
  Sender: FDA-Public Use
  Company Number: 2005-227

PATIENT
  Age: 62 Year
  Sex: Female

DRUGS (2)
  1. CARBOPLATIN [Suspect]
     Indication: OVARIAN CANCER
  2. PACLITAXEL [Concomitant]

REACTIONS (6)
  - APNOEA [None]
  - CARDIAC ARREST [None]
  - DRUG HYPERSENSITIVITY [None]
  - HYPOTENSION [None]
  - NAUSEA [None]
  - SYNCOPE [None]
